FAERS Safety Report 8013095-3 (Version None)
Quarter: 2011Q4

REPORT INFORMATION
  Report Type: 
  Country: None (occurrence: None)
  Receive Date: 20111229
  Receipt Date: 20111221
  Transmission Date: 20120403
  Serious: Yes (Hospitalization, Other)
  Sender: FDA-Public Use
  Company Number: US-PFIZER INC-2011314148

PATIENT

DRUGS (1)
  1. CHANTIX [Suspect]
     Dosage: UNK

REACTIONS (11)
  - EPILEPSY [None]
  - CHOLECYSTECTOMY [None]
  - DEPRESSION [None]
  - HALLUCINATION, VISUAL [None]
  - ROTATOR CUFF SYNDROME [None]
  - CEREBROVASCULAR ACCIDENT [None]
  - FRACTURED COCCYX [None]
  - SUICIDE ATTEMPT [None]
  - FOOT FRACTURE [None]
  - AMNESIA [None]
  - ANXIETY [None]
